FAERS Safety Report 17665134 (Version 1)
Quarter: 2020Q2

REPORT INFORMATION
  Report Type: Spontaneous
  Country: US (occurrence: US)
  Receive Date: 20200414
  Receipt Date: 20200414
  Transmission Date: 20200713
  Serious: No
  Sender: FDA-Public Use
  Company Number: US-PFIZER INC-2020148400

PATIENT
  Age: 52 Year
  Sex: Female

DRUGS (2)
  1. TURMERIC [CURCUMA LONGA RHIZOME] [Concomitant]
     Active Substance: HERBALS\TURMERIC
     Dosage: UNK
  2. XELJANZ XR [Suspect]
     Active Substance: TOFACITINIB CITRATE
     Indication: RHEUMATOID ARTHRITIS
     Dosage: 11 MG, DAILY
     Route: 048
     Dates: start: 20190508

REACTIONS (8)
  - Oropharyngeal pain [Unknown]
  - Intentional dose omission [Unknown]
  - Rhinorrhoea [Unknown]
  - Blood pressure increased [Unknown]
  - C-reactive protein decreased [Unknown]
  - Skin lesion [Unknown]
  - Headache [Unknown]
  - Influenza [Unknown]

NARRATIVE: CASE EVENT DATE: 202003
